FAERS Safety Report 17933861 (Version 1)
Quarter: 2020Q2

REPORT INFORMATION
  Report Type: Spontaneous
  Country: CA (occurrence: CA)
  Receive Date: 20200623
  Receipt Date: 20200623
  Transmission Date: 20200714
  Serious: Yes (Hospitalization)
  Sender: FDA-Public Use
  Company Number: CA-FRESENIUS KABI-FK202006359

PATIENT
  Age: 12 Year
  Sex: Female
  Weight: 46 kg

DRUGS (16)
  1. CHORIONIC GONADOTROPIN [Suspect]
     Active Substance: CHORIOGONADOTROPIN ALFA
     Indication: IN VITRO FERTILISATION
     Route: 058
  2. CETRORELIX [Suspect]
     Active Substance: CETRORELIX
     Indication: IN VITRO FERTILISATION
     Route: 058
  3. FOLLITROPIN ALFA [Suspect]
     Active Substance: FOLLITROPIN
     Indication: IN VITRO FERTILISATION
     Route: 058
  4. FOLLITROPIN ALFA [Suspect]
     Active Substance: FOLLITROPIN
     Route: 058
  5. LUTROPIN ALFA [Suspect]
     Active Substance: LUTROPIN ALFA
     Route: 058
  6. LUTROPIN ALFA [Suspect]
     Active Substance: LUTROPIN ALFA
     Route: 058
  7. LUTROPIN ALFA [Suspect]
     Active Substance: LUTROPIN ALFA
     Indication: IN VITRO FERTILISATION
     Route: 058
  8. FOLIC ACID. [Concomitant]
     Active Substance: FOLIC ACID
     Indication: PRODUCT USED FOR UNKNOWN INDICATION
     Route: 065
  9. PARACETAMOL [Concomitant]
     Active Substance: ACETAMINOPHEN
     Indication: PRODUCT USED FOR UNKNOWN INDICATION
     Route: 065
  10. CODEINE [Concomitant]
     Active Substance: CODEINE
     Indication: PRODUCT USED FOR UNKNOWN INDICATION
     Route: 065
  11. FOLLITROPIN ALFA [Suspect]
     Active Substance: FOLLITROPIN
     Route: 058
  12. BUSERELIN ACETATE [Suspect]
     Active Substance: BUSERELIN ACETATE
     Route: 058
  13. BUSERELIN ACETATE [Suspect]
     Active Substance: BUSERELIN ACETATE
     Indication: IN VITRO FERTILISATION
     Route: 058
  14. CEFAZOLIN [Concomitant]
     Active Substance: CEFAZOLIN
     Indication: PRODUCT USED FOR UNKNOWN INDICATION
     Route: 065
  15. DIMENHYDRINATE. [Concomitant]
     Active Substance: DIMENHYDRINATE
     Indication: PRODUCT USED FOR UNKNOWN INDICATION
     Route: 065
  16. DOXYCYCLINE. [Concomitant]
     Active Substance: DOXYCYCLINE
     Indication: PRODUCT USED FOR UNKNOWN INDICATION
     Route: 065

REACTIONS (5)
  - Ovarian enlargement [Unknown]
  - Noninfective oophoritis [Unknown]
  - Ovarian hyperstimulation syndrome [Unknown]
  - Ovarian haemorrhage [Unknown]
  - Adnexa uteri pain [Unknown]
